FAERS Safety Report 18965846 (Version 1)
Quarter: 2021Q1

REPORT INFORMATION
  Report Type: Spontaneous
  Country: CA (occurrence: CA)
  Receive Date: 20210304
  Receipt Date: 20210304
  Transmission Date: 20210420
  Serious: Yes (Hospitalization)
  Sender: FDA-Public Use
  Company Number: CA-JNJFOC-20210247556

PATIENT
  Age: 62 Year
  Sex: Female
  Weight: 90 kg

DRUGS (25)
  1. DOXEPIN [Concomitant]
     Active Substance: DOXEPIN
     Route: 048
  2. OXYNEO [Concomitant]
     Active Substance: OXYCODONE
     Dosage: DOSAGE FORM: TABLET (EXTENDED RELEASE)
  3. SYNTHROID [Concomitant]
     Active Substance: LEVOTHYROXINE SODIUM
  4. REMICADE [Suspect]
     Active Substance: INFLIXIMAB
     Indication: PSORIATIC ARTHROPATHY
     Route: 042
  5. ACETAMINOPHEN. [Concomitant]
     Active Substance: ACETAMINOPHEN
     Route: 048
  6. HYDROXYCHLOROQUINE SULFATE. [Concomitant]
     Active Substance: HYDROXYCHLOROQUINE SULFATE
     Route: 065
  7. SULFASALAZINE. [Concomitant]
     Active Substance: SULFASALAZINE
     Route: 048
  8. BLEXTEN [Concomitant]
     Active Substance: BILASTINE
     Route: 065
  9. CELEBREX [Concomitant]
     Active Substance: CELECOXIB
     Route: 048
  10. TOCTINO [Concomitant]
     Active Substance: ALITRETINOIN
  11. CETIRIZINE HYDROCHLORIDE. [Concomitant]
     Active Substance: CETIRIZINE HYDROCHLORIDE
     Route: 065
  12. REMICADE [Suspect]
     Active Substance: INFLIXIMAB
     Indication: RHEUMATOID ARTHRITIS
     Route: 042
  13. HYDROXYCHLOROQUINE SULFATE. [Concomitant]
     Active Substance: HYDROXYCHLOROQUINE SULFATE
     Route: 048
  14. HYDROXYCHLOROQUINE SULFATE. [Concomitant]
     Active Substance: HYDROXYCHLOROQUINE SULFATE
  15. LYRICA [Concomitant]
     Active Substance: PREGABALIN
     Route: 065
  16. APO?PROPRANOLOL [Concomitant]
     Active Substance: PROPRANOLOL HYDROCHLORIDE
  17. HYDROCHLOROTHIAZIDE. [Concomitant]
     Active Substance: HYDROCHLOROTHIAZIDE
     Route: 065
  18. OXYCODONE [Concomitant]
     Active Substance: OXYCODONE
  19. ZYLOPRIM [Concomitant]
     Active Substance: ALLOPURINOL
     Route: 065
  20. SINGULAIR [Concomitant]
     Active Substance: MONTELUKAST SODIUM
  21. VITAMIN D [COLECALCIFEROL] [Concomitant]
     Active Substance: CHOLECALCIFEROL
     Route: 065
  22. AMOXICILLIN TRIHYDRATE;CLARITHROMYCIN;OMEPRAZOLE MAGNESIUM [Concomitant]
     Route: 065
  23. LIPITOR [Concomitant]
     Active Substance: ATORVASTATIN CALCIUM
  24. LYRICA [Concomitant]
     Active Substance: PREGABALIN
  25. OXYCONTIN [Concomitant]
     Active Substance: OXYCODONE HYDROCHLORIDE
     Dosage: DOSAGE FORM: TABLET (EXTENDED RELEASE)
     Route: 065

REACTIONS (13)
  - Cystitis [Unknown]
  - Cough [Unknown]
  - Inappropriate schedule of product administration [Unknown]
  - Musculoskeletal stiffness [Unknown]
  - Hypotension [Unknown]
  - Intentional product use issue [Unknown]
  - Pyrexia [Unknown]
  - Localised infection [Unknown]
  - Incorrect dose administered [Unknown]
  - Illness [Unknown]
  - Joint injury [Unknown]
  - Product use issue [Unknown]
  - Off label use [Unknown]
